FAERS Safety Report 15928539 (Version 1)
Quarter: 2019Q1

REPORT INFORMATION
  Report Type: Spontaneous
  Country: IL (occurrence: IL)
  Receive Date: 20190206
  Receipt Date: 20190206
  Transmission Date: 20190417
  Serious: Yes (Other)
  Sender: FDA-Public Use
  Company Number: IL-009507513-1901ISR009775

PATIENT
  Age: 56 Year
  Sex: Female
  Weight: 87 kg

DRUGS (5)
  1. ACTOS [Concomitant]
     Active Substance: PIOGLITAZONE HYDROCHLORIDE
  2. INSULIN [Concomitant]
     Active Substance: INSULIN NOS
  3. METFORMIN [Concomitant]
     Active Substance: METFORMIN HYDROCHLORIDE
  4. ZEPATIER [Suspect]
     Active Substance: ELBASVIR\GRAZOPREVIR
     Indication: HEPATITIS C
     Dosage: 1 TAB X 1
     Route: 048
     Dates: start: 201803, end: 201806
  5. TRITACE [Concomitant]
     Active Substance: RAMIPRIL

REACTIONS (2)
  - Treatment failure [Unknown]
  - Hepatitis C [Unknown]
